FAERS Safety Report 12686929 (Version 1)
Quarter: 2016Q3

REPORT INFORMATION
  Report Type: Spontaneous
  Country: JP (occurrence: JP)
  Receive Date: 20160825
  Receipt Date: 20160825
  Transmission Date: 20161109
  Serious: Yes (Other)
  Sender: FDA-Public Use
  Company Number: JP-BAYER-2016-161069

PATIENT
  Age: 8 Year
  Sex: Male
  Weight: 25 kg

DRUGS (5)
  1. ANTI-DIARRHEAL [Concomitant]
     Active Substance: LOPERAMIDE HYDROCHLORIDE
     Indication: FAECES SOFT
  2. CEFPODOXIME PROXETIL. [Concomitant]
     Active Substance: CEFPODOXIME PROXETIL
     Dosage: UNK
     Route: 048
  3. CEFOTIAM [Concomitant]
     Active Substance: CEFOTIAM
     Indication: BACTERIAL INFECTION
     Dosage: 100 MG/KG, QD
  4. AMPICILLIN [Concomitant]
     Active Substance: AMPICILLIN
     Dosage: 120 MG/KG, QD
  5. ACETYLSALICYLIC ACID({=100 MG) [Suspect]
     Active Substance: ASPIRIN
     Dosage: 50 MG/KG, QD
     Route: 048

REACTIONS (1)
  - Drug-induced liver injury [None]
